FAERS Safety Report 18181725 (Version 2)
Quarter: 2020Q3

REPORT INFORMATION
  Report Type: Spontaneous
  Country: US (occurrence: US)
  Receive Date: 20200821
  Receipt Date: 20200825
  Transmission Date: 20201103
  Serious: No
  Sender: FDA-Public Use
  Company Number: US-TEVA-2020-US-1815821

PATIENT
  Age: 78 Year
  Sex: Female

DRUGS (2)
  1. ESCITALOPRAM OXALATE. [Suspect]
     Active Substance: ESCITALOPRAM OXALATE
     Dosage: ONE MONTH AGO HER DOCTOR PUT HER BACK ON THE PRODUCT.
     Route: 065
  2. ESCITALOPRAM OXALATE. [Suspect]
     Active Substance: ESCITALOPRAM OXALATE
     Indication: SEROTONIN DEFICIENCY
     Dosage: RECEIVED THIS MEDICATION ABOUT AND YEAR AGO.
     Route: 065

REACTIONS (5)
  - Decreased appetite [Not Recovered/Not Resolved]
  - Rash [Not Recovered/Not Resolved]
  - Dry mouth [Unknown]
  - Product quality issue [Unknown]
  - Weight increased [Recovered/Resolved]
